FAERS Safety Report 7624048-9 (Version None)
Quarter: 2011Q3

REPORT INFORMATION
  Report Type: 
  Country: None (occurrence: None)
  Receive Date: 20110720
  Receipt Date: 20110707
  Transmission Date: 20111222
  Serious: Yes (Hospitalization)
  Sender: FDA-Public Use
  Company Number: PHHY2011HU60304

PATIENT
  Sex: Female

DRUGS (1)
  1. ZOLEDRONOC ACID [Suspect]
     Dosage: 5 MG, UNK
     Route: 042
     Dates: start: 20100429

REACTIONS (12)
  - RED BLOOD CELL SEDIMENTATION RATE INCREASED [None]
  - PAIN IN EXTREMITY [None]
  - NASOPHARYNGITIS [None]
  - MUSCULOSKELETAL STIFFNESS [None]
  - QUALITY OF LIFE DECREASED [None]
  - BLOOD URIC ACID INCREASED [None]
  - CHILLS [None]
  - PYREXIA [None]
  - TREMOR [None]
  - OEDEMA PERIPHERAL [None]
  - FEELING ABNORMAL [None]
  - EPILEPSY [None]
